FAERS Safety Report 21796826 (Version 1)
Quarter: 2022Q4

REPORT INFORMATION
  Report Type: Spontaneous
  Country: CA (occurrence: CA)
  Receive Date: 20221230
  Receipt Date: 20221230
  Transmission Date: 20230113
  Serious: Yes (Other)
  Sender: FDA-Public Use
  Company Number: CA-CELLTRION INC.-2022CA015243

PATIENT

DRUGS (3)
  1. INFLECTRA [Suspect]
     Active Substance: INFLIXIMAB-DYYB
     Indication: Crohn^s disease
     Dosage: 400 MG INDUCTION AT Q 0,2,6 THEN EVERY 8 WEEKS
     Route: 042
     Dates: start: 20220910
  2. INFLECTRA [Suspect]
     Active Substance: INFLIXIMAB-DYYB
     Dosage: 400 MG INDUCTION AT Q 0,2,6 THEN EVERY 8 WEEKS
     Route: 042
     Dates: start: 20221024
  3. INFLECTRA [Suspect]
     Active Substance: INFLIXIMAB-DYYB
     Dosage: 400 MG INDUCTION AT Q 0,2,6 THEN EVERY 8 WEEKS
     Route: 042
     Dates: start: 20221220

REACTIONS (4)
  - Blood pressure fluctuation [Recovered/Resolved]
  - Off label use [Unknown]
  - Intentional product use issue [Unknown]
  - Rash macular [Recovering/Resolving]

NARRATIVE: CASE EVENT DATE: 20220901
